FAERS Safety Report 5348255-3 (Version None)
Quarter: 2007Q2

REPORT INFORMATION
  Report Type: 
  Country: None (occurrence: None)
  Receive Date: 20070606
  Receipt Date: 20070529
  Transmission Date: 20071010
  Serious: Yes (Death, Disabling, Other)
  Sender: FDA-Public Use
  Company Number: JP-ABBOTT-03P-087-0212206-00

PATIENT
  Sex: Male

DRUGS (18)
  1. KALETRA [Suspect]
     Indication: HIV INFECTION
     Route: 048
     Dates: start: 20040304, end: 20050715
  2. NORVIR [Suspect]
     Indication: HIV INFECTION
     Route: 048
     Dates: start: 19971111, end: 19980311
  3. DIDANOSINE [Suspect]
     Indication: HIV INFECTION
     Route: 048
     Dates: start: 20010401, end: 20010421
  4. DIDANOSINE [Suspect]
     Route: 048
     Dates: start: 20010422, end: 20050715
  5. SANILVUDINE [Suspect]
     Indication: HIV INFECTION
     Route: 048
     Dates: start: 20010401, end: 20011021
  6. SANILVUDINE [Suspect]
     Route: 048
     Dates: start: 20011022, end: 20040527
  7. ABACAVIR [Suspect]
     Indication: HIV INFECTION
     Route: 048
     Dates: start: 20010401, end: 20050715
  8. NELFINAVIR [Suspect]
     Indication: HIV INFECTION
     Route: 048
     Dates: start: 20010401, end: 20020303
  9. EFAVIRENZ [Suspect]
     Indication: HIV INFECTION
     Route: 048
     Dates: start: 20010401, end: 20020303
  10. ATAZANAVIR SULFATE [Suspect]
     Indication: HIV INFECTION
     Route: 048
     Dates: start: 20041008, end: 20050715
  11. RURIOCTOCOG ALFA [Concomitant]
     Indication: HAEMOPHILIA
     Dosage: 4-6 TIMES PER MONTH
     Route: 042
     Dates: start: 20010401, end: 20050715
  12. FACTOR VIII, RECOMBINANT [Concomitant]
     Indication: DRUG USE FOR UNKNOWN INDICATION
     Dates: start: 19991101
  13. AMPRENAVIR [Concomitant]
     Indication: DRUG USE FOR UNKNOWN INDICATION
     Dates: start: 19990510, end: 19990817
  14. TENOFOVIR [Concomitant]
     Indication: HIV INFECTION
     Dates: start: 20040528, end: 20041004
  15. PEGINTERFERON ALFA-2B [Concomitant]
     Indication: HEPATITIS C
     Dates: start: 20030317, end: 20030604
  16. RIBAVIRIN [Concomitant]
     Indication: HEPATITIS C
     Dates: start: 20030317, end: 20030604
  17. SOMATROPIN [Concomitant]
     Indication: WEIGHT DECREASED
     Route: 050
     Dates: start: 20010423, end: 20030608
  18. SOMATROPIN [Concomitant]
     Route: 050
     Dates: start: 20050523, end: 20050620

REACTIONS (8)
  - CACHEXIA [None]
  - DIARRHOEA [None]
  - HAEMORRHAGE INTRACRANIAL [None]
  - HYPERLACTACIDAEMIA [None]
  - OSTEONECROSIS [None]
  - PLATELET COUNT DECREASED [None]
  - RASH GENERALISED [None]
  - WALKING DISABILITY [None]
